FAERS Safety Report 19463693 (Version 1)
Quarter: 2021Q2

REPORT INFORMATION
  Report Type: Spontaneous
  Country: US (occurrence: US)
  Receive Date: 20210625
  Receipt Date: 20210625
  Transmission Date: 20210717
  Serious: No
  Sender: FDA-Public Use
  Company Number: US-PERRIGO-21US005074

PATIENT
  Age: 34 Year
  Sex: Female
  Weight: 74.38 kg

DRUGS (3)
  1. CLINDAMYCIN PHOSPHATE. [Suspect]
     Active Substance: CLINDAMYCIN PHOSPHATE
     Dosage: 1 PLEDGET, QHS
     Route: 061
     Dates: start: 20210413
  2. VITAMINS NOS [Concomitant]
     Active Substance: VITAMINS
     Indication: SUPPLEMENTATION THERAPY
     Dosage: UNKNOWN, UNKNOWN
     Route: 065
     Dates: start: 202010
  3. CLINDAMYCIN PHOSPHATE. [Suspect]
     Active Substance: CLINDAMYCIN PHOSPHATE
     Indication: ACNE CYSTIC
     Dosage: 1 PLEDGET, QHS
     Route: 061
     Dates: start: 202102, end: 202102

REACTIONS (2)
  - Inappropriate schedule of product administration [Not Recovered/Not Resolved]
  - Drug ineffective [Unknown]

NARRATIVE: CASE EVENT DATE: 202102
